FAERS Safety Report 6060953-5 (Version None)
Quarter: 2009Q1

REPORT INFORMATION
  Report Type: 
  Country: None (occurrence: None)
  Receive Date: 20090202
  Receipt Date: 20090121
  Transmission Date: 20090719
  Serious: Yes (Other)
  Sender: FDA-Public Use
  Company Number: US-ROCHE-603719

PATIENT
  Sex: Male
  Weight: 135.2 kg

DRUGS (7)
  1. PEGASYS [Suspect]
     Indication: HEPATITIS C
     Route: 058
     Dates: start: 20070521, end: 20080430
  2. COPEGUS [Suspect]
     Indication: HEPATITIS C
     Route: 048
     Dates: start: 20070521, end: 20080430
  3. PROCRIT [Suspect]
     Dosage: STRENGTH: 40,000 UNITS
     Route: 058
     Dates: start: 20071212, end: 20080430
  4. AMLODIPINE [Concomitant]
     Indication: HYPERTENSION
     Dosage: TAKEN DAILY
     Route: 048
     Dates: start: 20080508, end: 20090106
  5. PROGRAF [Concomitant]
     Indication: LIVER TRANSPLANT
     Route: 048
     Dates: start: 20061122
  6. CELLCEPT [Concomitant]
     Indication: LIVER TRANSPLANT
     Route: 048
     Dates: start: 20061122
  7. METOPROLOL [Concomitant]
     Indication: HYPERTENSION
     Route: 048
     Dates: start: 20061122

REACTIONS (2)
  - CARDIAC FAILURE CONGESTIVE [None]
  - PROTEINURIA [None]
